FAERS Safety Report 26059262 (Version 2)
Quarter: 2025Q4

REPORT INFORMATION
  Report Type: Spontaneous
  Country: GB (occurrence: GB)
  Receive Date: 20251118
  Receipt Date: 20251230
  Transmission Date: 20260117
  Serious: Yes (Death, Other)
  Sender: MYLAN
  Company Number: GB-MYLANLABS-2025M1098200

PATIENT
  Age: 40 Year
  Sex: Male
  Weight: 131.65 kg

DRUGS (2)
  1. CLOZARIL [Suspect]
     Active Substance: CLOZAPINE
     Indication: Schizophrenia
     Dosage: UNK
     Route: 061
  2. CLOZARIL [Suspect]
     Active Substance: CLOZAPINE
     Dosage: UNK, BID (100 MILLIGRAM IN THE MORNING AND 300 MILLIGRAM IN NIGHT)
     Route: 061
     Dates: start: 2020

REACTIONS (2)
  - Death [Fatal]
  - Salivary hypersecretion [Unknown]
